FAERS Safety Report 11051606 (Version 1)
Quarter: 2015Q2

REPORT INFORMATION
  Report Type: Spontaneous
  Country: US (occurrence: None)
  Receive Date: 20150420
  Receipt Date: 20150420
  Transmission Date: 20150821
  Serious: No
  Sender: FDA-Public Use
  Company Number: None

PATIENT
  Age: 62 Year
  Sex: Female
  Weight: 52.62 kg

DRUGS (2)
  1. ALENDRONATE SODIIUM TABLETS USP 20MG TEVA PHARMACEUTICALS [Suspect]
     Active Substance: ALENDRONATE SODIUM
     Indication: BONE DISORDER
     Dosage: 4 PILLS, BY MOUTH
     Dates: start: 20150112, end: 20150126
  2. OMEGAS [Concomitant]

REACTIONS (8)
  - Abdominal distension [None]
  - Muscle spasms [None]
  - Flatulence [None]
  - Diarrhoea [None]
  - Pain [None]
  - Diplopia [None]
  - Headache [None]
  - Constipation [None]

NARRATIVE: CASE EVENT DATE: 20150112
